FAERS Safety Report 7803094-6 (Version None)
Quarter: 2011Q4

REPORT INFORMATION
  Report Type: 
  Country: None (occurrence: None)
  Receive Date: 20111007
  Receipt Date: 20110927
  Transmission Date: 20120403
  Serious: Yes (Death, Life-Threatening, Hospitalization, Other)
  Sender: FDA-Public Use
  Company Number: JP-JNJFOC-20110900666

PATIENT
  Sex: Female

DRUGS (18)
  1. BIOFERMIN [Concomitant]
     Route: 065
     Dates: start: 20090425
  2. MAOTO [Concomitant]
     Route: 065
     Dates: start: 20090427
  3. VOLTAREN [Suspect]
     Route: 065
     Dates: start: 20090506, end: 20090506
  4. ACETAMINOPHEN [Concomitant]
     Route: 065
     Dates: start: 20090425
  5. VOLTAREN [Suspect]
     Indication: ANTIPYRESIS
     Route: 065
     Dates: start: 20090507, end: 20090507
  6. TRANEXAMIC ACID [Concomitant]
     Route: 065
     Dates: start: 20090427
  7. BANAN [Suspect]
     Indication: URINARY TRACT INFECTION
     Route: 048
     Dates: start: 20090425, end: 20090401
  8. METILON [Suspect]
     Indication: PYELONEPHRITIS
     Route: 030
     Dates: start: 20090501, end: 20090501
  9. BETAMETHASONE [Concomitant]
     Indication: PRODUCT USED FOR UNKNOWN INDICATION
     Route: 047
     Dates: start: 20090401, end: 20090509
  10. POTASSIUM CHLORIDE [Concomitant]
     Route: 042
     Dates: start: 20090430, end: 20090511
  11. VOLTAREN [Suspect]
     Route: 065
     Dates: start: 20090503, end: 20090503
  12. VOLTAREN [Suspect]
     Route: 065
     Dates: start: 20090510, end: 20090510
  13. ACETAMINOPHEN [Concomitant]
     Route: 048
     Dates: start: 20090502, end: 20090506
  14. METILON [Suspect]
     Indication: ANTIPYRESIS
     Route: 030
     Dates: start: 20090501, end: 20090501
  15. ROCEPHIN [Suspect]
     Indication: PYELONEPHRITIS
     Route: 042
     Dates: start: 20090429, end: 20090510
  16. VOLTAREN [Suspect]
     Route: 065
     Dates: start: 20090501, end: 20090501
  17. CARNACULIN [Concomitant]
     Indication: PRODUCT USED FOR UNKNOWN INDICATION
     Route: 048
     Dates: start: 20090401, end: 20090509
  18. LEVOFLOXACIN [Suspect]
     Indication: URINARY TRACT INFECTION
     Route: 048
     Dates: start: 20090427, end: 20090401

REACTIONS (7)
  - LIVER DISORDER [None]
  - DISSEMINATED INTRAVASCULAR COAGULATION [None]
  - DIARRHOEA HAEMORRHAGIC [None]
  - TOXIC EPIDERMAL NECROLYSIS [None]
  - SEPSIS [None]
  - HISTIOCYTOSIS HAEMATOPHAGIC [None]
  - DRUG INEFFECTIVE [None]
